FAERS Safety Report 6145345-2 (Version None)
Quarter: 2009Q2

REPORT INFORMATION
  Report Type: 
  Country: None (occurrence: None)
  Receive Date: 20090402
  Receipt Date: 20090326
  Transmission Date: 20091009
  Serious: Yes (Hospitalization)
  Sender: FDA-Public Use
  Company Number: TRP_06151_2009

PATIENT
  Age: 27 Year
  Sex: Female
  Weight: 125.1928 kg

DRUGS (8)
  1. RIBASPHERE [Suspect]
     Indication: HEPATITIS C
     Dosage: (400 MG BID ORAL)
     Route: 048
     Dates: start: 20080102
  2. PEG-INTRON [Suspect]
     Indication: HEPATITIS C
     Dosage: (150 UG 1X/WEEK SUBCUTANEOUS)
     Route: 058
     Dates: start: 20090102
  3. PROAIR HFA [Concomitant]
  4. ASPIRIN [Concomitant]
  5. ZANTAC [Concomitant]
  6. TYLENOL [Concomitant]
  7. HYDROXYZINE [Concomitant]
  8. LAMOTRIGINE [Concomitant]

REACTIONS (12)
  - ANXIETY [None]
  - CHEST DISCOMFORT [None]
  - CHEST PAIN [None]
  - CHILLS [None]
  - DIZZINESS [None]
  - DYSPNOEA [None]
  - INJECTION SITE HAEMATOMA [None]
  - INJECTION SITE REACTION [None]
  - MEDICATION ERROR [None]
  - NAUSEA [None]
  - PYREXIA [None]
  - TACHYCARDIA [None]
